FAERS Safety Report 23893554 (Version 1)
Quarter: 2024Q2

REPORT INFORMATION
  Report Type: Spontaneous
  Country: US (occurrence: None)
  Receive Date: 20240524
  Receipt Date: 20240524
  Transmission Date: 20240716
  Serious: No
  Sender: FDA-Public Use
  Company Number: US-ROCHE-3454709

PATIENT
  Sex: Female

DRUGS (4)
  1. ACTEMRA [Suspect]
     Active Substance: TOCILIZUMAB
     Indication: Giant cell arteritis
     Dosage: TAKES ON SUNDAYS, STRENGTH: 162MG/0.9M
     Route: 058
     Dates: start: 202101
  2. ACTEMRA [Suspect]
     Active Substance: TOCILIZUMAB
  3. ACTEMRA [Suspect]
     Active Substance: TOCILIZUMAB
     Dosage: STRENGTH:162MG/0.9M
     Route: 058
     Dates: start: 202203
  4. ACTEMRA [Suspect]
     Active Substance: TOCILIZUMAB

REACTIONS (8)
  - Wrong technique in product usage process [Unknown]
  - Product communication issue [Unknown]
  - Product use issue [Unknown]
  - Intentional product misuse [Unknown]
  - Product complaint [Unknown]
  - No adverse event [Unknown]
  - Device defective [Unknown]
  - Drug delivery system malfunction [Unknown]

NARRATIVE: CASE EVENT DATE: 20231022
